FAERS Safety Report 4940632-5 (Version None)
Quarter: 2006Q1

REPORT INFORMATION
  Report Type: 
  Country: None (occurrence: None)
  Receive Date: 20060206
  Receipt Date: 20050901
  Transmission Date: 20060701
  Serious: Yes (Hospitalization)
  Sender: FDA-Public Use
  Company Number: MEDI-0003662

PATIENT
  Age: 67 Year
  Sex: Male
  Weight: 105.2345 kg

DRUGS (12)
  1. ETHYOL [Suspect]
     Indication: CHEMOTHERAPY
     Dosage: 500 MG, 5 IN 1 WK, SUBCUTANEOUS
     Route: 058
     Dates: start: 20050718, end: 20050729
  2. ETHYOL [Suspect]
     Indication: RADIOTHERAPY
     Dosage: 500 MG, 5 IN 1 WK, SUBCUTANEOUS
     Route: 058
     Dates: start: 20050718, end: 20050729
  3. ETHYOL [Suspect]
     Indication: CHEMOTHERAPY
     Dosage: 500 MG, 5 IN 1 WK, SUBCUTANEOUS
     Route: 058
     Dates: start: 20050802
  4. ETHYOL [Suspect]
     Indication: RADIOTHERAPY
     Dosage: 500 MG, 5 IN 1 WK, SUBCUTANEOUS
     Route: 058
     Dates: start: 20050802
  5. CISPLATIN [Concomitant]
  6. ETOPOSIDE [Concomitant]
  7. RADIATION THERAPY [Concomitant]
  8. ADVAIR DISKUS 100/50 [Concomitant]
  9. FUROSEMIDE [Concomitant]
  10. ALBUTEROL [Concomitant]
  11. ZOCOR [Concomitant]
  12. ASPIRIN [Concomitant]

REACTIONS (2)
  - CHILLS [None]
  - PYREXIA [None]
